APPROVED DRUG PRODUCT: BETA-2
Active Ingredient: ISOETHARINE HYDROCHLORIDE
Strength: 1%
Dosage Form/Route: SOLUTION;INHALATION
Application: A086711 | Product #001
Applicant: NEPHRON CORP
Approved: Approved Prior to Jan 1, 1982 | RLD: No | RS: No | Type: DISCN